FAERS Safety Report 5419143-9 (Version None)
Quarter: 2007Q3

REPORT INFORMATION
  Report Type: 
  Country: None (occurrence: None)
  Receive Date: 20070815
  Receipt Date: 20070808
  Transmission Date: 20080115
  Serious: Yes (Other)
  Sender: FDA-Public Use
  Company Number: CHPA2006US12273

PATIENT
  Age: 32 Year
  Sex: Female
  Weight: 61.2 kg

DRUGS (1)
  1. TRANSDERM SCOP [Suspect]
     Indication: MOTION SICKNESS
     Dosage: 1.5 MG, TRANSDERMAL
     Route: 062
     Dates: start: 20061123, end: 20061124

REACTIONS (24)
  - ABASIA [None]
  - AMNESIA [None]
  - APHASIA [None]
  - BLOOD CALCIUM DECREASED [None]
  - BLOOD POTASSIUM DECREASED [None]
  - CONVULSIVE THRESHOLD LOWERED [None]
  - DIZZINESS [None]
  - ELECTROENCEPHALOGRAM ABNORMAL [None]
  - FEAR [None]
  - GAIT DISTURBANCE [None]
  - GLOSSODYNIA [None]
  - GRAND MAL CONVULSION [None]
  - HAEMATOCRIT DECREASED [None]
  - HAEMOGLOBIN DECREASED [None]
  - LACERATION [None]
  - LIMB INJURY [None]
  - LOSS OF CONSCIOUSNESS [None]
  - MYALGIA [None]
  - PARTIAL SEIZURES [None]
  - RED BLOOD CELL COUNT DECREASED [None]
  - STRESS [None]
  - TONGUE BITING [None]
  - UNEVALUABLE EVENT [None]
  - UNRESPONSIVE TO STIMULI [None]
